FAERS Safety Report 5000171-2 (Version None)
Quarter: 2006Q2

REPORT INFORMATION
  Report Type: 
  Country: None (occurrence: None)
  Receive Date: 20060509
  Receipt Date: 20050725
  Transmission Date: 20061013
  Serious: Yes (Hospitalization, Other)
  Sender: FDA-Public Use
  Company Number: 2005084590

PATIENT
  Age: 66 Year
  Sex: Female

DRUGS (5)
  1. LYRICA [Suspect]
     Dosage: 150 MG (75 MG, 2 IN 1 D), ORAL
     Route: 048
     Dates: start: 20050120, end: 20050602
  2. EUNERPAN (MELPERONE HYDROCHLORIDE) [Suspect]
     Indication: ILL-DEFINED DISORDER
     Dosage: UNKNOWN
     Route: 065
     Dates: end: 20050101
  3. AMANTADINE HCL [Concomitant]
  4. MADOPAR (BENSERAZIDE HYDROCHLORIDE, LEVODOPA) [Concomitant]
  5. LEVOTHYROXINE SODIUM [Concomitant]

REACTIONS (10)
  - ASTHENIA [None]
  - BALANCE DISORDER [None]
  - FALL [None]
  - FATIGUE [None]
  - FEMUR FRACTURE [None]
  - HALLUCINATION, VISUAL [None]
  - HIP FRACTURE [None]
  - PANIC REACTION [None]
  - SENSATION OF HEAVINESS [None]
  - WEIGHT INCREASED [None]
